FAERS Safety Report 19578977 (Version 1)
Quarter: 2021Q3

REPORT INFORMATION
  Report Type: Spontaneous
  Country: US (occurrence: US)
  Receive Date: 20210720
  Receipt Date: 20210720
  Transmission Date: 20211014
  Serious: No
  Sender: FDA-Public Use
  Company Number: US-TEVA-2021-US-1933195

PATIENT

DRUGS (1)
  1. ADDERALL [Suspect]
     Active Substance: AMPHETAMINE ASPARTATE\AMPHETAMINE SULFATE\DEXTROAMPHETAMINE SACCHARATE\DEXTROAMPHETAMINE SULFATE
     Route: 065

REACTIONS (7)
  - Anger [Unknown]
  - Asthenia [Unknown]
  - Product quality issue [Unknown]
  - Disturbance in attention [Unknown]
  - Depressed mood [Unknown]
  - Somnolence [Unknown]
  - Drug ineffective [Unknown]
